FAERS Safety Report 9300505 (Version 1)
Quarter: 2013Q2

REPORT INFORMATION
  Report Type: Spontaneous
  Country: US (occurrence: US)
  Receive Date: 20130521
  Receipt Date: 20130521
  Transmission Date: 20140414
  Serious: Yes (Other)
  Sender: FDA-Public Use
  Company Number: US-BRISTOL-MYERS SQUIBB COMPANY-18896068

PATIENT
  Age: 60 Year
  Sex: Female
  Weight: 115.64 kg

DRUGS (4)
  1. METFORMIN HCL [Suspect]
  2. LIPITOR [Suspect]
     Indication: BLOOD CHOLESTEROL INCREASED
     Dosage: TAB
     Route: 048
  3. NEURONTIN [Concomitant]
  4. BACLOFEN [Concomitant]

REACTIONS (2)
  - Blood cholesterol increased [Unknown]
  - Blood triglycerides increased [Unknown]
